FAERS Safety Report 6309024-0 (Version None)
Quarter: 2009Q3

REPORT INFORMATION
  Report Type: 
  Country: None (occurrence: None)
  Receive Date: 20090814
  Receipt Date: 20070813
  Transmission Date: 20100115
  Serious: Yes (Other)
  Sender: FDA-Public Use
  Company Number: US-ASTRAZENECA-2006UW08444

PATIENT
  Age: 18723 Day
  Sex: Female
  Weight: 61.7 kg

DRUGS (11)
  1. SEROQUEL [Suspect]
     Indication: SCHIZOPHRENIA
     Dosage: 200 MG -300 MG
     Route: 048
     Dates: start: 19980615
  2. SEROQUEL [Suspect]
     Indication: BIPOLAR DISORDER
     Dosage: 200 MG -300 MG
     Route: 048
     Dates: start: 19980615
  3. SEROQUEL [Suspect]
     Indication: INSOMNIA
     Dosage: 200 MG -300 MG
     Route: 048
     Dates: start: 19980615
  4. SEROQUEL [Suspect]
     Dosage: 100 MG HS TO 300 MG
     Route: 048
     Dates: start: 19991229
  5. SEROQUEL [Suspect]
     Dosage: 100 MG HS TO 300 MG
     Route: 048
     Dates: start: 19991229
  6. SEROQUEL [Suspect]
     Dosage: 100 MG HS TO 300 MG
     Route: 048
     Dates: start: 19991229
  7. SYNTHROID [Concomitant]
     Indication: HYPOTHYROIDISM
     Dosage: 700 MCG TO 200 MCG PER DAY, 15 MG Q DAY
     Route: 048
     Dates: start: 19981214
  8. KLONOPIN [Concomitant]
     Route: 048
     Dates: start: 20000208
  9. PROZAC [Concomitant]
     Dosage: 20 MG QAM, 90 MG WEEKLY
     Route: 048
     Dates: start: 20000207
  10. TEMAZEPAM [Concomitant]
     Indication: SLEEP DISORDER
     Dosage: 15 MG TO 30 MG HS AS NEEDED
     Route: 048
     Dates: start: 20050728
  11. XANAX [Concomitant]
     Dates: start: 20050728

REACTIONS (5)
  - DIABETES MELLITUS [None]
  - DIABETIC COMA [None]
  - DIABETIC NEUROPATHY [None]
  - HYPOGLYCAEMIA [None]
  - TYPE 1 DIABETES MELLITUS [None]
